FAERS Safety Report 18524998 (Version 3)
Quarter: 2022Q3

REPORT INFORMATION
  Report Type: Spontaneous
  Country: JP (occurrence: JP)
  Receive Date: 20201120
  Receipt Date: 20220815
  Transmission Date: 20221026
  Serious: Yes (Other)
  Sender: FDA-Public Use
  Company Number: JP-KYOWAKIRIN-2020AKK018566

PATIENT
  Age: 51 Year
  Sex: Female

DRUGS (29)
  1. PEGFILGRASTIM [Suspect]
     Active Substance: PEGFILGRASTIM
     Indication: Colony stimulating factor therapy
     Dosage: 3.6 MILLIGRAM
     Route: 058
     Dates: start: 20200610
  2. DECADRON [Suspect]
     Active Substance: DEXAMETHASONE
     Indication: Vomiting
     Dosage: 8 MG
     Route: 048
     Dates: start: 20200610, end: 20200611
  3. DECADRON [Suspect]
     Active Substance: DEXAMETHASONE
     Dosage: 8 MG
     Route: 048
     Dates: start: 20200625, end: 20200626
  4. DECADRON [Suspect]
     Active Substance: DEXAMETHASONE
     Dosage: 8 MG
     Route: 048
     Dates: start: 20200708, end: 20200709
  5. DECADRON [Suspect]
     Active Substance: DEXAMETHASONE
     Dosage: 8 MG
     Route: 048
     Dates: start: 20200722, end: 20200723
  6. DECADRON [Suspect]
     Active Substance: DEXAMETHASONE
     Dosage: 8 MG
     Route: 048
     Dates: start: 20200826, end: 20200827
  7. DECADRON [Suspect]
     Active Substance: DEXAMETHASONE
     Dosage: 8 MG
     Route: 048
     Dates: start: 20201001, end: 20201002
  8. DECADRON [Suspect]
     Active Substance: DEXAMETHASONE
     Dosage: 8 MG
     Route: 048
     Dates: start: 20201015
  9. EPIRUBICIN HYDROCHLORIDE [Concomitant]
     Active Substance: EPIRUBICIN HYDROCHLORIDE
     Indication: Triple negative breast cancer
     Dosage: 90 MG/M2
     Route: 041
     Dates: start: 20200609, end: 20200609
  10. EPIRUBICIN HYDROCHLORIDE [Concomitant]
     Active Substance: EPIRUBICIN HYDROCHLORIDE
     Dosage: 90 MG/M2
     Route: 041
     Dates: start: 20200624, end: 20200624
  11. EPIRUBICIN HYDROCHLORIDE [Concomitant]
     Active Substance: EPIRUBICIN HYDROCHLORIDE
     Dosage: 90 MG/M2
     Route: 041
     Dates: start: 20200707, end: 20200707
  12. EPIRUBICIN HYDROCHLORIDE [Concomitant]
     Active Substance: EPIRUBICIN HYDROCHLORIDE
     Dosage: 90 MG/M2
     Route: 041
     Dates: start: 20200721, end: 20200721
  13. CYCLOPHOSPHAMIDE [Concomitant]
     Active Substance: CYCLOPHOSPHAMIDE
     Indication: Triple negative breast cancer
     Dosage: 600 MG/M2
     Route: 041
     Dates: start: 20200609, end: 20200609
  14. CYCLOPHOSPHAMIDE [Concomitant]
     Active Substance: CYCLOPHOSPHAMIDE
     Dosage: 600 MG/M2
     Route: 041
     Dates: start: 20200624, end: 20200624
  15. CYCLOPHOSPHAMIDE [Concomitant]
     Active Substance: CYCLOPHOSPHAMIDE
     Dosage: 600 MG/M2
     Route: 041
     Dates: start: 20200707, end: 20200707
  16. CYCLOPHOSPHAMIDE [Concomitant]
     Active Substance: CYCLOPHOSPHAMIDE
     Dosage: 600 MG/M2
     Route: 041
     Dates: start: 20200721, end: 20200721
  17. PACLITAXEL [Concomitant]
     Active Substance: PACLITAXEL
     Indication: Triple negative breast cancer
     Dosage: 175 MG/M2
     Route: 041
     Dates: start: 20200825, end: 20200825
  18. PACLITAXEL [Concomitant]
     Active Substance: PACLITAXEL
     Dosage: 175 MG/M2
     Route: 041
     Dates: start: 20200916, end: 20200916
  19. PACLITAXEL [Concomitant]
     Active Substance: PACLITAXEL
     Dosage: 175 MG/M2
     Route: 041
     Dates: start: 20200930, end: 20200930
  20. PACLITAXEL [Concomitant]
     Active Substance: PACLITAXEL
     Dosage: 175 MG/M2
     Route: 041
     Dates: start: 20201014, end: 20201014
  21. OLANZAPINE [Concomitant]
     Active Substance: OLANZAPINE
     Indication: Vomiting
     Dosage: 5 MG
     Route: 048
     Dates: start: 20200610, end: 20200614
  22. OLANZAPINE [Concomitant]
     Active Substance: OLANZAPINE
     Dosage: 2.5 MG
     Route: 048
     Dates: start: 20200625, end: 20200629
  23. OLANZAPINE [Concomitant]
     Active Substance: OLANZAPINE
     Dosage: 2.5 MG
     Route: 048
     Dates: start: 20200708, end: 20200712
  24. OLANZAPINE [Concomitant]
     Active Substance: OLANZAPINE
     Dosage: 2.5 MG
     Route: 048
     Dates: start: 20200722, end: 20200726
  25. ZYPREXA [Concomitant]
     Active Substance: OLANZAPINE
     Indication: Vomiting
     Dosage: 2.5 MG
     Route: 048
     Dates: start: 20200610, end: 20200614
  26. PREDONINE [Concomitant]
     Active Substance: PREDNISOLONE
     Indication: Vomiting
     Dosage: 30 MG
     Route: 048
     Dates: start: 20200905, end: 20200907
  27. PREDONINE [Concomitant]
     Active Substance: PREDNISOLONE
     Dosage: 20 MG
     Route: 048
     Dates: start: 202009, end: 202009
  28. PREDONINE [Concomitant]
     Active Substance: PREDNISOLONE
     Dosage: 10 MG
     Route: 048
     Dates: start: 20200916, end: 20200929
  29. EMEND [Concomitant]
     Active Substance: APREPITANT
     Indication: Product used for unknown indication
     Dosage: UNK
     Route: 048

REACTIONS (1)
  - Pneumonia [Recovering/Resolving]

NARRATIVE: CASE EVENT DATE: 20200902
